FAERS Safety Report 6874875-0 (Version None)
Quarter: 2010Q3

REPORT INFORMATION
  Report Type: 
  Country: None (occurrence: None)
  Receive Date: 20100723
  Receipt Date: 20100524
  Transmission Date: 20110219
  Serious: Yes (Hospitalization, Other)
  Sender: FDA-Public Use
  Company Number: 20109046

PATIENT
  Sex: Male
  Weight: 50 kg

DRUGS (3)
  1. BACLOFEN [Suspect]
     Indication: MUSCLE SPASTICITY
     Dosage: 70 - 80 MCG, DAILY, INTRATHECAL
     Route: 037
  2. LANDSEN [Concomitant]
  3. DANTRIUM [Concomitant]

REACTIONS (1)
  - DEEP VEIN THROMBOSIS [None]
